FAERS Safety Report 13757512 (Version 1)
Quarter: 2017Q3

REPORT INFORMATION
  Report Type: Spontaneous
  Country: US (occurrence: US)
  Receive Date: 20170717
  Receipt Date: 20170717
  Transmission Date: 20171127
  Serious: Yes (Other)
  Sender: FDA-Public Use
  Company Number: US-BEH-2017082005

PATIENT
  Age: 55 Year
  Sex: Male

DRUGS (2)
  1. HAEMATE P [Suspect]
     Active Substance: ANTIHEMOPHILIC FACTOR HUMAN
     Indication: COAGULOPATHY
     Dosage: 4000 RCOF IU, TWICE DAILY AS NEEDED
     Route: 042
     Dates: start: 20130423
  2. HAEMATE P [Suspect]
     Active Substance: ANTIHEMOPHILIC FACTOR HUMAN
     Indication: HAEMORRHAGE

REACTIONS (2)
  - Gastrointestinal haemorrhage [Unknown]
  - Haemorrhage [Unknown]
